FAERS Safety Report 8983339 (Version 2)
Quarter: 2013Q1

REPORT INFORMATION
  Report Type: Spontaneous
  Country: TW (occurrence: TW)
  Receive Date: 20121221
  Receipt Date: 20130308
  Transmission Date: 20140127
  Serious: Yes (Hospitalization, Other)
  Sender: FDA-Public Use
  Company Number: TW-ABBOTT-12P-153-0975447-00

PATIENT
  Age: 53 Year
  Sex: Female

DRUGS (1)
  1. HUMIRA [Suspect]
     Indication: RHEUMATOID ARTHRITIS
     Route: 058
     Dates: start: 20091126, end: 201004

REACTIONS (3)
  - Pyrexia [Unknown]
  - Pulmonary tuberculosis [Unknown]
  - Pulmonary oedema [Unknown]
